FAERS Safety Report 7580897-7 (Version None)
Quarter: 2011Q2

REPORT INFORMATION
  Report Type: 
  Country: None (occurrence: None)
  Receive Date: 20110629
  Receipt Date: 20110622
  Transmission Date: 20111010
  Serious: Yes (Death, Life-Threatening, Hospitalization, Disabling)
  Sender: FDA-Public Use
  Company Number: US-MERCK-1106USA03117

PATIENT
  Age: 62 Year
  Sex: Female

DRUGS (10)
  1. ZOCOR [Suspect]
     Route: 048
  2. METFORMIN [Concomitant]
     Route: 065
  3. COREG [Concomitant]
     Route: 065
  4. LOSARTAN POTASSIUM [Concomitant]
     Route: 065
  5. MAXALT [Concomitant]
     Route: 048
  6. ZOCOR [Suspect]
     Route: 048
     Dates: start: 20110413, end: 20110525
  7. ASPIRIN [Concomitant]
     Route: 065
  8. ATIVAN [Concomitant]
     Route: 065
  9. AMBIEN [Concomitant]
     Route: 065
  10. SEROQUEL [Concomitant]
     Route: 065

REACTIONS (3)
  - RENAL FAILURE ACUTE [None]
  - RHABDOMYOLYSIS [None]
  - CARDIAC ARREST [None]
